FAERS Safety Report 11562272 (Version 1)
Quarter: 2015Q3

REPORT INFORMATION
  Report Type: Spontaneous
  Country: US (occurrence: US)
  Receive Date: 20150916
  Receipt Date: 20150916
  Transmission Date: 20151125
  Serious: Yes (Hospitalization)
  Sender: FDA-Public Use
  Company Number: US-ELI_LILLY_AND_COMPANY-US200812000746

PATIENT
  Sex: Female

DRUGS (1)
  1. FORTEO [Suspect]
     Active Substance: TERIPARATIDE
     Indication: OSTEOPOROSIS
     Dates: start: 2008

REACTIONS (9)
  - Hypopnoea [Not Recovered/Not Resolved]
  - Urinary tract infection [Recovered/Resolved]
  - Pain [Recovered/Resolved]
  - Dyspnoea [Not Recovered/Not Resolved]
  - Pleurisy [Recovering/Resolving]
  - Poor quality sleep [Recovered/Resolved]
  - Cough [Recovering/Resolving]
  - Pneumonia [Recovered/Resolved]
  - Sinusitis [Unknown]

NARRATIVE: CASE EVENT DATE: 2008
